FAERS Safety Report 19868418 (Version 1)
Quarter: 2021Q3

REPORT INFORMATION
  Report Type: Spontaneous
  Country: GB (occurrence: GB)
  Receive Date: 20210921
  Receipt Date: 20210921
  Transmission Date: 20211014
  Serious: Yes (Life-Threatening, Hospitalization, Other)
  Sender: FDA-Public Use
  Company Number: GB-SA-2021SA308426

PATIENT
  Age: 48 Year
  Sex: Female

DRUGS (4)
  1. DOCETAXEL. [Suspect]
     Active Substance: DOCETAXEL
     Indication: BREAST CANCER
     Dosage: UNK
  2. CARBOPLATIN. [Suspect]
     Active Substance: CARBOPLATIN
     Indication: BREAST CANCER
     Dosage: UNK
  3. PERTUZUMAB. [Suspect]
     Active Substance: PERTUZUMAB
     Indication: BREAST CANCER
     Dosage: UNK
  4. TRASTUZUMAB. [Suspect]
     Active Substance: TRASTUZUMAB
     Indication: BREAST CANCER
     Dosage: UNK

REACTIONS (16)
  - Pulmonary embolism [Recovering/Resolving]
  - Neutropenic sepsis [Recovering/Resolving]
  - Candida infection [Recovering/Resolving]
  - Neutropenic colitis [Recovering/Resolving]
  - Respiratory disorder [Recovering/Resolving]
  - Oesophageal perforation [Recovering/Resolving]
  - Large intestine perforation [Recovering/Resolving]
  - Deep vein thrombosis [Recovering/Resolving]
  - Stress [Unknown]
  - Clostridium bacteraemia [Recovering/Resolving]
  - Ascites [Recovering/Resolving]
  - Pulseless electrical activity [Recovered/Resolved]
  - Pleural effusion [Recovering/Resolving]
  - Depressed mood [Unknown]
  - Pneumothorax [Recovering/Resolving]
  - Pneumomediastinum [Recovering/Resolving]
